FAERS Safety Report 7215113-9 (Version None)
Quarter: 2011Q1

REPORT INFORMATION
  Report Type: 
  Country: None (occurrence: None)
  Receive Date: 20110107
  Receipt Date: 20100826
  Transmission Date: 20110831
  Serious: No
  Sender: FDA-Public Use
  Company Number: A0877886A

PATIENT
  Age: 81 Year
  Sex: Male

DRUGS (10)
  1. TAMSULOSIN [Concomitant]
  2. ASPIRIN [Concomitant]
  3. GARLIC SUPPLEMENT [Concomitant]
  4. ONE A DAY VITAMIN [Concomitant]
  5. AMLODIPINE [Concomitant]
  6. LECITHIN [Concomitant]
  7. OMEPRAZOLE [Concomitant]
  8. LOVAZA [Suspect]
     Dosage: 1CAP TWICE PER DAY
     Route: 048
     Dates: start: 20100812
  9. FOLIC ACID [Concomitant]
  10. METOPROLOL [Concomitant]

REACTIONS (1)
  - DIZZINESS [None]
